FAERS Safety Report 4638467-6 (Version None)
Quarter: 2005Q2

REPORT INFORMATION
  Report Type: 
  Country: None (occurrence: None)
  Receive Date: 20050418
  Receipt Date: 20050406
  Transmission Date: 20051028
  Serious: Yes (Hospitalization, Other)
  Sender: FDA-Public Use
  Company Number: CA-2004-029125

PATIENT
  Age: 50 Year
  Sex: Male
  Weight: 71.1 kg

DRUGS (6)
  1. FLUDARA [Suspect]
     Indication: CHRONIC LYMPHOCYTIC LEUKAEMIA
     Dosage: 25 MG/M2, INTRAVENOUS
     Route: 042
     Dates: start: 20040203, end: 20040526
  2. CYCLOPHOSPHAMIDE [Suspect]
     Dosage: 250 MG/M2, CYCLES X 3 DAYS, INTRAVENOUS
     Route: 042
     Dates: start: 20040203, end: 20040526
  3. SYNTHROID [Concomitant]
  4. ACYCLOVIR [Concomitant]
  5. FOLIC ACID [Concomitant]
  6. WARFARIN SODIUM [Concomitant]

REACTIONS (9)
  - AGRANULOCYTOSIS [None]
  - ANAEMIA HAEMOLYTIC AUTOIMMUNE [None]
  - AUTOIMMUNE NEUTROPENIA [None]
  - CANDIDIASIS [None]
  - COOMBS POSITIVE HAEMOLYTIC ANAEMIA [None]
  - HAEMOGLOBIN DECREASED [None]
  - SINUSITIS ASPERGILLUS [None]
  - STAPHYLOCOCCAL INFECTION [None]
  - WEIGHT DECREASED [None]
